FAERS Safety Report 23330556 (Version 2)
Quarter: 2024Q2

REPORT INFORMATION
  Report Type: Report from Study
  Country: CA (occurrence: CA)
  Receive Date: 20231222
  Receipt Date: 20240508
  Transmission Date: 20240715
  Serious: Yes (Other)
  Sender: FDA-Public Use
  Company Number: CA-JNJFOC-20230209380

PATIENT
  Age: 29 Year
  Sex: Female

DRUGS (3)
  1. REMICADE [Suspect]
     Active Substance: INFLIXIMAB
     Indication: Colitis ulcerative
     Dosage: EXPIRY DATE: 01-AUG-2025
     Route: 041
     Dates: start: 20120905
  2. REMICADE [Suspect]
     Active Substance: INFLIXIMAB
     Route: 041
  3. REMICADE [Suspect]
     Active Substance: INFLIXIMAB
     Dosage: 103 RD INFUSION
     Route: 041
     Dates: start: 20231215

REACTIONS (5)
  - Perinatal depression [Recovered/Resolved]
  - Exposure during pregnancy [Recovered/Resolved]
  - COVID-19 [Recovering/Resolving]
  - Mastitis [Unknown]
  - Tongue injury [Unknown]

NARRATIVE: CASE EVENT DATE: 20221201
